FAERS Safety Report 6327573-6 (Version None)
Quarter: 2009Q3

REPORT INFORMATION
  Report Type: 
  Country: None (occurrence: None)
  Receive Date: 20090825
  Receipt Date: 20090818
  Transmission Date: 20100115
  Serious: Yes (Disabling, Other)
  Sender: FDA-Public Use
  Company Number: BR-ELI_LILLY_AND_COMPANY-BR200906003924

PATIENT
  Sex: Female
  Weight: 60 kg

DRUGS (13)
  1. HUMULIN N [Suspect]
     Indication: TYPE 2 DIABETES MELLITUS
     Dosage: 10 IU, DAILY (1/D)
     Route: 058
     Dates: start: 20050101
  2. HUMULIN N [Suspect]
     Dosage: 10 IU, DAILY (1/D)
     Route: 058
     Dates: start: 20050101
  3. HUMULIN N [Suspect]
     Dosage: UNK, UNKNOWN
     Route: 065
  4. GABAPENTIN [Concomitant]
     Dosage: 300 MG, DAILY (1/D)
     Route: 048
  5. NIMODIPINA [Concomitant]
     Dosage: 30 MG, 2/D
     Route: 048
  6. MONOCORDIL [Concomitant]
     Dosage: UNK, UNKNOWN
     Route: 065
  7. AAS [Concomitant]
     Dosage: UNK, UNKNOWN
     Route: 065
  8. METFORMIN HCL [Concomitant]
     Dosage: 850 MG, UNKNOWN
     Route: 065
  9. LORAX [Concomitant]
     Dosage: UNK, UNKNOWN
     Route: 065
  10. DIPIRONA [Concomitant]
     Dosage: UNK, UNKNOWN
     Route: 065
  11. ANCORON [Concomitant]
     Dosage: UNK, UNKNOWN
     Route: 065
  12. ATENOLOL [Concomitant]
     Dosage: UNK, UNKNOWN
     Route: 065
  13. OMEPRAZOL [Concomitant]
     Dosage: UNK, UNKNOWN
     Route: 065

REACTIONS (9)
  - ARTERIAL OCCLUSIVE DISEASE [None]
  - BLISTER [None]
  - BLOOD GLUCOSE INCREASED [None]
  - CARDIAC DISORDER [None]
  - CEREBROVASCULAR ACCIDENT [None]
  - DIZZINESS [None]
  - PRURITUS GENERALISED [None]
  - SYNCOPE [None]
  - WALKING DISABILITY [None]
